FAERS Safety Report 5107690-9 (Version None)
Quarter: 2006Q3

REPORT INFORMATION
  Report Type: 
  Country: None (occurrence: None)
  Receive Date: 20060919
  Receipt Date: 20060623
  Transmission Date: 20061208
  Serious: Yes (Other)
  Sender: FDA-Public Use
  Company Number: US-BAYER-200612668BCC

PATIENT
  Age: 68 Year
  Sex: Male
  Weight: 73 kg

DRUGS (2)
  1. EXTRA STRENGTH BAYER CAPLETS [Suspect]
     Indication: PROPHYLAXIS
     Route: 048
     Dates: start: 19660101, end: 20060101
  2. DIOVAN [Concomitant]

REACTIONS (2)
  - DRUG DEPENDENCE [None]
  - VITREOUS FLOATERS [None]
